FAERS Safety Report 16370387 (Version 1)
Quarter: 2019Q2

REPORT INFORMATION
  Report Type: Spontaneous
  Country: FR (occurrence: FR)
  Receive Date: 20190530
  Receipt Date: 20190530
  Transmission Date: 20190711
  Serious: Yes (Hospitalization)
  Sender: FDA-Public Use
  Company Number: FR-ZYDUS-037091

PATIENT
  Age: 87 Year
  Sex: Female
  Weight: 55.9 kg

DRUGS (10)
  1. PARACETAMOL [Concomitant]
     Active Substance: ACETAMINOPHEN
  2. POTASSIUM [Concomitant]
     Active Substance: POTASSIUM
  3. LERCANIDIPINE [Suspect]
     Active Substance: LERCANIDIPINE
     Indication: HYPERTENSIVE HEART DISEASE
     Route: 048
  4. FLUINDIONE [Concomitant]
     Active Substance: FLUINDIONE
  5. BETAHISTINE [Concomitant]
     Active Substance: BETAHISTINE
  6. URAPIDIL [Suspect]
     Active Substance: URAPIDIL
     Indication: HYPERTENSIVE HEART DISEASE
     Route: 048
  7. RAMIPRIL. [Suspect]
     Active Substance: RAMIPRIL
     Indication: HYPERTENSIVE HEART DISEASE
     Route: 048
  8. FUROSEMIDE. [Suspect]
     Active Substance: FUROSEMIDE
     Indication: HYPERTENSIVE HEART DISEASE
     Route: 048
  9. ESOMEPRAZOLE. [Concomitant]
     Active Substance: ESOMEPRAZOLE MAGNESIUM
  10. BISOCE [Suspect]
     Active Substance: BISOPROLOL
     Indication: HYPERTENSIVE HEART DISEASE
     Route: 048

REACTIONS (1)
  - Fall [Recovered/Resolved]

NARRATIVE: CASE EVENT DATE: 201812
